FAERS Safety Report 5320050-0 (Version None)
Quarter: 2007Q1

REPORT INFORMATION
  Report Type: 
  Country: None (occurrence: None)
  Receive Date: 20070215
  Receipt Date: 20060620
  Transmission Date: 20070707
  Serious: Yes (Hospitalization)
  Sender: FDA-Public Use
  Company Number: MC200600402

PATIENT
  Age: 54 Year
  Sex: Male
  Weight: 86 kg

DRUGS (1)
  1. ANGIOMAX [Suspect]
     Indication: CARDIAC OPERATION
     Dosage: SEE IMAGE
     Route: 042

REACTIONS (3)
  - COAGULATION TIME ABNORMAL [None]
  - HAEMORRHAGE [None]
  - MEDIASTINAL HAEMATOMA [None]
